FAERS Safety Report 5430747-X (Version None)
Quarter: 2007Q3

REPORT INFORMATION
  Report Type: 
  Country: None (occurrence: None)
  Receive Date: 20070830
  Receipt Date: 20061108
  Transmission Date: 20080115
  Serious: No
  Sender: FDA-Public Use
  Company Number: A0626715A

PATIENT
  Age: 37 Year
  Sex: Female

DRUGS (3)
  1. WELLBUTRIN XL [Suspect]
     Indication: ANXIETY
     Dosage: 150MG PER DAY
     Route: 048
     Dates: start: 20061102
  2. ALLEGRA [Concomitant]
  3. MULTI-VITAMIN [Concomitant]

REACTIONS (3)
  - HEADACHE [None]
  - NAUSEA [None]
  - STOMACH DISCOMFORT [None]
